FAERS Safety Report 7086561-5 (Version None)
Quarter: 2010Q4

REPORT INFORMATION
  Report Type: 
  Country: None (occurrence: None)
  Receive Date: 20101105
  Receipt Date: 20101021
  Transmission Date: 20110411
  Serious: Yes (Other)
  Sender: FDA-Public Use
  Company Number: PHHY2010FR58925

PATIENT
  Sex: Female

DRUGS (2)
  1. GLEEVEC [Suspect]
     Dosage: 400 MG, QD
     Dates: start: 19921109
  2. GLEEVEC [Suspect]
     Dosage: 400 MG

REACTIONS (4)
  - OPTIC NERVE INJURY [None]
  - OPTIC NEUROPATHY [None]
  - RETINAL INJURY [None]
  - SCOTOMA [None]
